FAERS Safety Report 6808772-3 (Version None)
Quarter: 2010Q2

REPORT INFORMATION
  Report Type: 
  Country: None (occurrence: None)
  Receive Date: 20100630
  Receipt Date: 20090917
  Transmission Date: 20101027
  Serious: No
  Sender: FDA-Public Use
  Company Number: US-PFIZER INC-2009257351

PATIENT
  Sex: Female
  Weight: 70.295 kg

DRUGS (4)
  1. TIKOSYN [Suspect]
     Indication: ATRIAL FIBRILLATION
     Dosage: FREQUENCY: 2X\DAY, EVERY DAY;
     Dates: start: 20090813
  2. MONTELUKAST SODIUM [Concomitant]
     Dosage: UNK
  3. CETIRIZINE [Concomitant]
     Dosage: UNK
  4. CHLORPHENIRAMINE MALEATE [Concomitant]
     Dosage: UNK

REACTIONS (2)
  - DYSPHONIA [None]
  - DYSPNOEA [None]
